FAERS Safety Report 6545721-X (Version None)
Quarter: 2010Q1

REPORT INFORMATION
  Report Type: 
  Country: None (occurrence: None)
  Receive Date: 20100121
  Receipt Date: 20100108
  Transmission Date: 20100710
  Serious: Yes (Hospitalization)
  Sender: FDA-Public Use
  Company Number: DE-WATSON-2010-00438

PATIENT
  Age: 77 Year
  Sex: Female

DRUGS (2)
  1. SIMVASTATIN [Suspect]
     Indication: HYPERLIPIDAEMIA
     Dosage: 40 MG, UNKNOWN
     Route: 048
     Dates: start: 20091101
  2. MADOPAR                            /00349201/ [Suspect]
     Indication: RESTLESS LEGS SYNDROME
     Dosage: 62,5
     Route: 048
     Dates: start: 20090501

REACTIONS (2)
  - MONOPARESIS [None]
  - RHABDOMYOLYSIS [None]
